FAERS Safety Report 8353831-X (Version None)
Quarter: 2012Q2

REPORT INFORMATION
  Report Type: 
  Country: None (occurrence: None)
  Receive Date: 20120511
  Receipt Date: 20111221
  Transmission Date: 20120825
  Serious: No
  Sender: FDA-Public Use
  Company Number: US-GLAXOSMITHKLINE-A0959081A

PATIENT
  Sex: Female

DRUGS (5)
  1. XANAX [Concomitant]
  2. FASLODEX [Concomitant]
  3. LEXAPRO [Concomitant]
  4. TYKERB [Suspect]
     Indication: BREAST CANCER
     Dosage: 1250MG PER DAY
     Route: 048
  5. AMBIEN [Concomitant]

REACTIONS (2)
  - NAUSEA [None]
  - DIARRHOEA [None]
